FAERS Safety Report 5627670-4 (Version None)
Quarter: 2008Q1

REPORT INFORMATION
  Report Type: 
  Country: None (occurrence: None)
  Receive Date: 20080214
  Receipt Date: 20080214
  Transmission Date: 20080703
  Serious: Yes (Death)
  Sender: FDA-Public Use
  Company Number: None

PATIENT
  Sex: Male

DRUGS (5)
  1. PROZAC [Suspect]
  2. AMBIEN [Suspect]
  3. SINEMET [Suspect]
  4. IMDUR [Suspect]
  5. ZOFRAN [Suspect]

REACTIONS (3)
  - COMPLETED SUICIDE [None]
  - MUSCLE SPASMS [None]
  - RESTLESSNESS [None]
